FAERS Safety Report 6619324-2 (Version None)
Quarter: 2010Q1

REPORT INFORMATION
  Report Type: 
  Country: None (occurrence: None)
  Receive Date: 20100303
  Receipt Date: 20100216
  Transmission Date: 20100710
  Serious: Yes (Hospitalization)
  Sender: FDA-Public Use
  Company Number: 2010000559

PATIENT
  Sex: Male

DRUGS (7)
  1. TARCEVA [Suspect]
     Indication: LUNG ADENOCARCINOMA
     Dosage: 150 MG, ORAL
     Route: 048
     Dates: end: 20090723
  2. PREVISCAN (FLUINDIONE) [Suspect]
     Indication: DEEP VEIN THROMBOSIS
     Dosage: ORAL
     Route: 048
     Dates: end: 20090723
  3. ASPIRIN [Suspect]
     Indication: CEREBROVASCULAR ACCIDENT
     Dosage: 75 MG, ORAL
     Route: 048
     Dates: end: 20090723
  4. OXCARBAZEPINE [Concomitant]
  5. CORDARONE [Concomitant]
  6. RAMIPRIL [Concomitant]
  7. ATORVASTATIN CALCIUM [Concomitant]

REACTIONS (3)
  - ANAEMIA [None]
  - DRUG INTERACTION [None]
  - DUODENAL ULCER HAEMORRHAGE [None]
